FAERS Safety Report 16419625 (Version 3)
Quarter: 2021Q2

REPORT INFORMATION
  Report Type: Other
  Country: PT (occurrence: PT)
  Receive Date: 20190612
  Receipt Date: 20210407
  Transmission Date: 20210716
  Serious: Yes (Hospitalization)
  Sender: FDA-Public Use
  Company Number: PT-ROCHE-2331264

PATIENT
  Age: 70 Year
  Sex: Female
  Weight: 54 kg

DRUGS (34)
  1. FULVESTRANT. [Suspect]
     Active Substance: FULVESTRANT
     Indication: BREAST CANCER
     Route: 030
     Dates: start: 20171102, end: 20190614
  2. QUETIAPINE. [Concomitant]
     Active Substance: QUETIAPINE
     Dosage: ONGOING = NOT CHECKED
     Dates: end: 20190614
  3. MIRTAZAPINE. [Concomitant]
     Active Substance: MIRTAZAPINE
     Dosage: ONGOING = NOT CHECKED
     Dates: end: 20190614
  4. PERTUZUMAB. [Suspect]
     Active Substance: PERTUZUMAB
     Indication: BREAST CANCER
     Dosage: MOST RECENT DOSE PRIOR TO THE EVENT: 17/APR/2019
     Route: 042
     Dates: start: 20170608, end: 20180323
  5. TRAVOCORT [Concomitant]
     Active Substance: DIFLUCORTOLONE VALERATE\ISOCONAZOLE NITRATE
     Dosage: ONGOING = NOT CHECKED
     Dates: end: 20190614
  6. BUPROPION. [Concomitant]
     Active Substance: BUPROPION
     Dosage: ONGOING = NOT CHECKED
     Dates: end: 20190614
  7. DEXAMETHASONE. [Concomitant]
     Active Substance: DEXAMETHASONE
     Dosage: ONGOING = NOT CHECKED
     Dates: end: 20190614
  8. ISOPHANE INSULIN [Concomitant]
     Active Substance: INSULIN NOS
     Dosage: ONGOING = NOT CHECKED
     Dates: end: 20190614
  9. CHOLECALCIFEROL [Concomitant]
     Active Substance: CHOLECALCIFEROL
     Dosage: ONGOING = NOT CHECKED
     Dates: end: 20190614
  10. PIPERACILLIN. [Concomitant]
     Active Substance: PIPERACILLIN SODIUM
     Indication: PULMONARY EMBOLISM
     Dates: start: 20190507, end: 20190614
  11. INDAPAMIDE. [Concomitant]
     Active Substance: INDAPAMIDE
     Dosage: ONGOING = NOT CHECKED
     Dates: end: 20190614
  12. VALPROATE [Concomitant]
     Active Substance: VALPROIC ACID
     Dosage: ONGOING = NOT CHECKED
     Dates: end: 20190614
  13. LOPERAMIDE [Concomitant]
     Active Substance: LOPERAMIDE
     Dosage: ONGOING = NOT CHECKED
     Dates: end: 20190614
  14. PANTOPRAZOLE [Concomitant]
     Active Substance: PANTOPRAZOLE
     Dosage: ONGOING = NOT CHECKED
     Dates: end: 20190614
  15. FENOFIBRATE. [Concomitant]
     Active Substance: FENOFIBRATE
     Dosage: ONGOING = NOT CHECKED
     Dates: end: 20190614
  16. FOSFOMYCIN [Concomitant]
     Active Substance: FOSFOMYCIN
     Dosage: ONGOING = NOT CHECKED
     Dates: end: 20190614
  17. ZOLEDRONIC ACID [Concomitant]
     Active Substance: ZOLEDRONIC ACID
     Dates: start: 20171102, end: 20190614
  18. TAZOBACTAM [Concomitant]
     Active Substance: TAZOBACTAM
     Indication: PULMONARY EMBOLISM
     Dates: start: 20190507, end: 20190614
  19. FERRIC CARBOXYMALTOSE [Concomitant]
     Active Substance: FERRIC CARBOXYMALTOSE
     Dosage: ONGOING = NOT CHECKED
     Dates: end: 20190614
  20. RISPERIDONE. [Concomitant]
     Active Substance: RISPERIDONE
     Dosage: ONGOING = NOT CHECKED
     Dates: end: 20190614
  21. RIVAROXABAN [Concomitant]
     Active Substance: RIVAROXABAN
     Dosage: ONGOING = NOT CHECKED
     Dates: end: 20190614
  22. METFORMIN [Concomitant]
     Active Substance: METFORMIN HYDROCHLORIDE
     Dosage: ONGOING = NOT CHECKED
     Dates: end: 20190614
  23. FLAVOXATE [Concomitant]
     Active Substance: FLAVOXATE
     Dosage: ONGOING = NOT CHECKED
     Dates: end: 20190614
  24. CEFUROXIME. [Concomitant]
     Active Substance: CEFUROXIME
     Dosage: ONGOING = NOT CHECKED
     Dates: start: 20190507, end: 20190515
  25. PREGABALIN. [Concomitant]
     Active Substance: PREGABALIN
     Dosage: ONGOING = NOT CHECKED
     Dates: end: 20190614
  26. SODIUM PICOSULFATE [Concomitant]
     Active Substance: SODIUM PICOSULFATE
     Dosage: ONGOING = NOT CHECKED
     Dates: end: 20190614
  27. ACETYLCYSTEINE. [Concomitant]
     Active Substance: ACETYLCYSTEINE
     Dosage: ONGOING = NOT CHECKED
     Dates: start: 20190426, end: 20190501
  28. PACLITAXEL. [Suspect]
     Active Substance: PACLITAXEL
     Indication: BREAST CANCER
     Dosage: MOST RECENT DOSE PRIOR TO THE EVENT:20/JUL/2017
     Route: 042
     Dates: start: 20170608, end: 20170622
  29. CALCIUM CARBONATE. [Concomitant]
     Active Substance: CALCIUM CARBONATE
     Dosage: ONGOING = NOT CHECKED
     Dates: end: 20190614
  30. TRASTUZUMAB. [Suspect]
     Active Substance: TRASTUZUMAB
     Indication: BREAST CANCER
     Dosage: MOST RECENT DOSE PRIOR TO THE EVENT: 17/APR/2019
     Route: 042
     Dates: start: 20170608, end: 20180323
  31. PRAVASTATIN. [Concomitant]
     Active Substance: PRAVASTATIN
     Dosage: ONGOING = NOT CHECKED
     Dates: end: 20190614
  32. CEFUROXIME. [Concomitant]
     Active Substance: CEFUROXIME
     Dosage: ONGOING = NOT CHECKED
     Dates: start: 20190418, end: 20190425
  33. PERINDOPRIL [Concomitant]
     Active Substance: PERINDOPRIL
     Indication: EJECTION FRACTION DECREASED
     Dates: start: 20180426, end: 20190614
  34. BISOPROLOL [Concomitant]
     Active Substance: BISOPROLOL
     Indication: EJECTION FRACTION DECREASED
     Dates: start: 20180802, end: 20190614

REACTIONS (1)
  - Pulmonary embolism [Not Recovered/Not Resolved]

NARRATIVE: CASE EVENT DATE: 20190507
